FAERS Safety Report 24790495 (Version 4)
Quarter: 2025Q3

REPORT INFORMATION
  Report Type: Report from Study
  Country: US (occurrence: US)
  Receive Date: 20241230
  Receipt Date: 20250905
  Transmission Date: 20251021
  Serious: Yes (Other)
  Sender: TAKEDA
  Company Number: US-TAKEDA-2024TUS108536

PATIENT
  Age: 81 Year
  Sex: Female
  Weight: 51 kg

DRUGS (23)
  1. HUMAN IMMUNOGLOBULIN G [Suspect]
     Active Substance: HUMAN IMMUNOGLOBULIN G
     Indication: Immunodeficiency common variable
     Dosage: 14 GRAM, Q2WEEKS
  2. ATORVASTATIN CALCIUM [Concomitant]
     Active Substance: ATORVASTATIN CALCIUM
  3. ALBUTEROL\IPRATROPIUM [Concomitant]
     Active Substance: ALBUTEROL\IPRATROPIUM
  4. ZYRTEC [Concomitant]
     Active Substance: CETIRIZINE HYDROCHLORIDE
  5. XARELTO [Concomitant]
     Active Substance: RIVAROXABAN
  6. VITAMIN E [Concomitant]
     Active Substance: .ALPHA.-TOCOPHEROL
  7. GUAIFENESIN DM [Concomitant]
     Active Substance: DEXTROMETHORPHAN\DEXTROMETHORPHAN HYDROBROMIDE\GUAIFENESIN
  8. CALCIUM\CHOLECALCIFEROL [Concomitant]
     Active Substance: CALCIUM\CHOLECALCIFEROL
  9. METOPROLOL SUCCINATE [Concomitant]
     Active Substance: METOPROLOL SUCCINATE
  10. ACETYLCYSTEINE [Concomitant]
     Active Substance: ACETYLCYSTEINE
  11. PFIZER-BIONTECH COVID-19 VACCINE [Concomitant]
     Active Substance: TOZINAMERAN
  12. MONTELUKAST SODIUM [Concomitant]
     Active Substance: MONTELUKAST SODIUM
  13. SPIRONOLACTONE [Concomitant]
     Active Substance: SPIRONOLACTONE
  14. VENTOLIN HFA [Concomitant]
     Active Substance: ALBUTEROL SULFATE
  15. OXYGEN [Concomitant]
     Active Substance: OXYGEN
  16. FUROSEMIDE [Concomitant]
     Active Substance: FUROSEMIDE
  17. LOSARTAN POTASSIUM [Concomitant]
     Active Substance: LOSARTAN POTASSIUM
  18. MULTAQ [Concomitant]
     Active Substance: DRONEDARONE
  19. FLUBLOK [Concomitant]
     Active Substance: INFLUENZA VIRUS VACCINE
  20. EPINEPHRINE [Concomitant]
     Active Substance: EPINEPHRINE
  21. ACETAMINOPHEN [Concomitant]
     Active Substance: ACETAMINOPHEN
  22. LIDOCAINE [Concomitant]
     Active Substance: LIDOCAINE
  23. NUCALA [Concomitant]
     Active Substance: MEPOLIZUMAB

REACTIONS (8)
  - Nephrolithiasis [Unknown]
  - Hand fracture [Unknown]
  - COVID-19 [Not Recovered/Not Resolved]
  - Stomatitis [Unknown]
  - Infusion site warmth [Unknown]
  - Abdominal distension [Unknown]
  - Infusion site swelling [Unknown]
  - Abdominal pain [Recovered/Resolved]

NARRATIVE: CASE EVENT DATE: 20241101
